FAERS Safety Report 10144459 (Version 2)
Quarter: 2014Q2

REPORT INFORMATION
  Report Type: Spontaneous
  Country: US (occurrence: US)
  Receive Date: 20140430
  Receipt Date: 20140605
  Transmission Date: 20141212
  Serious: No
  Sender: FDA-Public Use
  Company Number: US-009507513-1404USA014309

PATIENT
  Age: 37 Year
  Sex: Female

DRUGS (6)
  1. OXYTROL FOR WOMEN [Suspect]
     Indication: HYPERTONIC BLADDER
     Dosage: 3 PATCHES, AS DIRECTED IN THE PACKAGE
     Route: 062
     Dates: start: 20140321, end: 20140331
  2. GABAPENTIN [Concomitant]
     Indication: BACK PAIN
  3. TRAMADOL HYDROCHLORIDE [Concomitant]
  4. PRILOSEC [Concomitant]
     Indication: DYSPEPSIA
  5. VITAMINS (UNSPECIFIED) [Concomitant]
  6. PROGESTERONE (+) ESTRADIOL BENZOATE [Concomitant]
     Indication: HORMONE REPLACEMENT THERAPY

REACTIONS (4)
  - Dry mouth [Recovered/Resolved]
  - Constipation [Unknown]
  - Discomfort [Unknown]
  - Drug ineffective [Unknown]
